FAERS Safety Report 8516057-2 (Version None)
Quarter: 2012Q3

REPORT INFORMATION
  Report Type: 
  Country: None (occurrence: None)
  Receive Date: 20120717
  Receipt Date: 20120516
  Transmission Date: 20120928
  Serious: No
  Sender: FDA-Public Use
  Company Number: US-NOVEN-12US004667

PATIENT
  Age: 70 Year
  Sex: Male

DRUGS (1)
  1. FENTANYL [Suspect]
     Indication: BACK PAIN
     Dosage: 25 UG/HR, Q 3DAYS
     Route: 062
     Dates: start: 20120101

REACTIONS (1)
  - INSOMNIA [None]
